FAERS Safety Report 5329768-7 (Version None)
Quarter: 2007Q2

REPORT INFORMATION
  Report Type: 
  Country: None (occurrence: None)
  Receive Date: 20070521
  Receipt Date: 20070510
  Transmission Date: 20071010
  Serious: Yes (Other)
  Sender: FDA-Public Use
  Company Number: FR-AMGEN-UK224388

PATIENT
  Sex: Female

DRUGS (1)
  1. MIMPARA [Suspect]
     Indication: PARATHYROID TUMOUR MALIGNANT
     Route: 065

REACTIONS (2)
  - DYSPEPSIA [None]
  - VOMITING [None]
